FAERS Safety Report 9346906 (Version 1)
Quarter: 2013Q2

REPORT INFORMATION
  Report Type: Spontaneous
  Country: BR (occurrence: BR)
  Receive Date: 20130613
  Receipt Date: 20130613
  Transmission Date: 20140414
  Serious: Yes (Other)
  Sender: FDA-Public Use
  Company Number: PHHY2013BR059877

PATIENT
  Age: 72 Year
  Sex: Female
  Weight: 53 kg

DRUGS (6)
  1. DIOVAN AMLO FIX [Suspect]
     Indication: CARDIAC DISORDER
     Dosage: 1 DF, (320/5 MG) A DAY
     Route: 048
  2. MAREVAN [Concomitant]
     Indication: CARDIAC DISORDER
     Dosage: 1 DF, (5 MG) A DAY
     Route: 048
  3. INDAPEN [Concomitant]
     Indication: CARDIAC DISORDER
     Dosage: 1 DF, (1.5 MG) A DAY
     Route: 048
  4. SIMVASTATIN [Concomitant]
     Indication: CARDIAC DISORDER
     Dosage: 1 DF, (20 MG) A DAY
     Route: 048
  5. ATENOLOL [Concomitant]
     Indication: CARDIAC DISORDER
     Dosage: 3 DF, (50 MG) A DAY
     Route: 048
  6. LEVOID [Concomitant]
     Indication: THYROID DISORDER
     Dosage: 1 DF, (75 UG) A DAY
     Route: 048

REACTIONS (6)
  - Spinal disorder [Recovered/Resolved]
  - Spinal pain [Not Recovered/Not Resolved]
  - Haematochezia [Recovered/Resolved]
  - Haematemesis [Recovered/Resolved]
  - Diarrhoea [Recovered/Resolved]
  - Blood pressure fluctuation [Unknown]
